FAERS Safety Report 17248507 (Version 1)
Quarter: 2020Q1

REPORT INFORMATION
  Report Type: Spontaneous
  Country: US (occurrence: US)
  Receive Date: 20200108
  Receipt Date: 20200108
  Transmission Date: 20200409
  Serious: Yes (Other)
  Sender: FDA-Public Use
  Company Number: US-BAUSCH-BL-2019-066849

PATIENT
  Sex: Female

DRUGS (1)
  1. LUMIFY [Suspect]
     Active Substance: BRIMONIDINE TARTRATE
     Indication: OCULAR HYPERAEMIA
     Route: 065

REACTIONS (6)
  - Abnormal sensation in eye [Unknown]
  - Headache [Unknown]
  - Eye haemorrhage [Recovered/Resolved]
  - Dizziness [Unknown]
  - Fatigue [Unknown]
  - Dry eye [Unknown]
